FAERS Safety Report 24221771 (Version 1)
Quarter: 2024Q3

REPORT INFORMATION
  Report Type: Spontaneous
  Country: DE (occurrence: DE)
  Receive Date: 20240819
  Receipt Date: 20240819
  Transmission Date: 20241017
  Serious: Yes (Other)
  Sender: MERCK KGAA
  Company Number: DE-Merck Healthcare KGaA-2024041827

PATIENT
  Sex: Female

DRUGS (2)
  1. EUTHYROX [Suspect]
     Active Substance: LEVOTHYROXINE SODIUM
     Indication: Post procedural hypothyroidism
  2. EUTHYROX [Suspect]
     Active Substance: LEVOTHYROXINE SODIUM
     Dosage: EUTHYROX 75 MICROGRAMS

REACTIONS (2)
  - Drug intolerance [Unknown]
  - Hypertension [Recovered/Resolved]
